FAERS Safety Report 10892154 (Version 2)
Quarter: 2015Q2

REPORT INFORMATION
  Report Type: Report from Study
  Country: US (occurrence: US)
  Receive Date: 20150306
  Receipt Date: 20150428
  Transmission Date: 20150821
  Serious: Yes (Hospitalization)
  Sender: FDA-Public Use
  Company Number: US-PFIZER INC-2014362628

PATIENT
  Age: 62 Year
  Sex: Male
  Weight: 104.54 kg

DRUGS (26)
  1. BLINDED IBUPROFEN [Suspect]
     Active Substance: IBUPROFEN
     Indication: RHEUMATOID ARTHRITIS
     Dosage: HIGH, TID
     Route: 048
     Dates: start: 20110909, end: 20140822
  2. PLACEBO [Suspect]
     Active Substance: UNSPECIFIED INGREDIENT
     Indication: OSTEOARTHRITIS
  3. CLEOCIN [Suspect]
     Active Substance: CLINDAMYCIN PHOSPHATE
     Indication: ANTIBIOTIC PROPHYLAXIS
     Dosage: 600 MG, Q8 H
     Route: 042
     Dates: start: 20140831, end: 20140918
  4. VANCOMYCIN [Suspect]
     Active Substance: VANCOMYCIN
     Indication: ANTIBIOTIC THERAPY
     Dosage: 1.5 G, Q12 H
     Route: 042
     Dates: start: 20140831, end: 20140918
  5. NEXIUM [Concomitant]
     Active Substance: ESOMEPRAZOLE MAGNESIUM
     Indication: PROPHYLAXIS
     Dosage: 20 MG, DAILY
     Route: 048
     Dates: start: 20110909, end: 20140822
  6. JANUVIA [Concomitant]
     Active Substance: SITAGLIPTIN PHOSPHATE
     Indication: DIABETES MELLITUS
     Dosage: 100 MG, DAILY
     Route: 048
     Dates: start: 2010
  7. PLACEBO [Suspect]
     Active Substance: UNSPECIFIED INGREDIENT
     Indication: RHEUMATOID ARTHRITIS
     Dosage: HIGH, TID
     Route: 048
     Dates: start: 20110909, end: 20140822
  8. BLINDED IBUPROFEN [Suspect]
     Active Substance: IBUPROFEN
     Indication: RHEUMATOID ARTHRITIS
     Dosage: HIGH, TID
     Route: 048
     Dates: start: 20110909, end: 20140822
  9. AMITRIPTYLINE [Concomitant]
     Active Substance: AMITRIPTYLINE
     Indication: DEPRESSION
     Dosage: 20 MG, DAILY
     Route: 048
     Dates: start: 2011
  10. BLINDED NAPROXEN [Suspect]
     Active Substance: NAPROXEN
     Indication: OSTEOARTHRITIS
  11. BLINDED NAPROXEN [Suspect]
     Active Substance: NAPROXEN
     Indication: RHEUMATOID ARTHRITIS
     Dosage: HIGH, TID
     Route: 048
     Dates: start: 20110909, end: 20140822
  12. BLINDED NAPROXEN [Suspect]
     Active Substance: NAPROXEN
     Indication: RHEUMATOID ARTHRITIS
     Dosage: HIGH, TID
     Route: 048
     Dates: start: 20110909, end: 20140822
  13. BLINDED NAPROXEN [Suspect]
     Active Substance: NAPROXEN
     Indication: OSTEOARTHRITIS
  14. ACTO [Concomitant]
     Indication: DIABETES MELLITUS
     Dosage: 15 MG 1 TAB, 2X/DAY
     Route: 048
     Dates: start: 2000
  15. BLINDED IBUPROFEN [Suspect]
     Active Substance: IBUPROFEN
     Indication: RHEUMATOID ARTHRITIS
     Dosage: HIGH, TID
     Route: 048
     Dates: start: 20110909, end: 20140822
  16. BLINDED NAPROXEN [Suspect]
     Active Substance: NAPROXEN
     Indication: RHEUMATOID ARTHRITIS
     Dosage: HIGH, TID
     Route: 048
     Dates: start: 20110909, end: 20140822
  17. BLINDED CELECOXIB [Suspect]
     Active Substance: CELECOXIB
     Indication: OSTEOARTHRITIS
  18. BLINDED IBUPROFEN [Suspect]
     Active Substance: IBUPROFEN
     Indication: OSTEOARTHRITIS
  19. ASPIRIN. [Concomitant]
     Active Substance: ASPIRIN
     Indication: CARDIOVASCULAR DISORDER
     Dosage: 81 MG, DAILY
     Route: 048
     Dates: start: 2000
  20. ACTO METFORMIN [Concomitant]
     Indication: DIABETES MELLITUS
     Dosage: 1000MG 1 TAB, 2X/DAY
     Route: 048
     Dates: start: 2000
  21. MULTIVITAMIN VITALITY CALCIUM COMPLETE [Concomitant]
     Indication: VITAMIN SUPPLEMENTATION
     Dosage: 1 DF, DAILY
     Route: 048
     Dates: start: 1991
  22. BLINDED CELECOXIB [Suspect]
     Active Substance: CELECOXIB
     Indication: RHEUMATOID ARTHRITIS
     Dosage: HIGH, TID
     Route: 048
     Dates: start: 20110909, end: 20140822
  23. BLINDED IBUPROFEN [Suspect]
     Active Substance: IBUPROFEN
     Indication: OSTEOARTHRITIS
  24. BLINDED NAPROXEN [Suspect]
     Active Substance: NAPROXEN
     Indication: OSTEOARTHRITIS
  25. BLINDED IBUPROFEN [Suspect]
     Active Substance: IBUPROFEN
     Indication: OSTEOARTHRITIS
  26. LANTUS [Concomitant]
     Active Substance: INSULIN GLARGINE
     Indication: DIABETES MELLITUS
     Dosage: 40 IU, DAILY
     Route: 058
     Dates: start: 2011

REACTIONS (1)
  - Renal failure [Recovered/Resolved]

NARRATIVE: CASE EVENT DATE: 20140918
